FAERS Safety Report 4302012-5 (Version None)
Quarter: 2004Q1

REPORT INFORMATION
  Report Type: 
  Country: None (occurrence: None)
  Receive Date: 20040126
  Receipt Date: 20030829
  Transmission Date: 20041129
  Serious: No
  Sender: FDA-Public Use
  Company Number: US_030896797

PATIENT
  Age: 8 Year
  Sex: Male

DRUGS (1)
  1. STRATTERA [Suspect]
     Dates: start: 20030301

REACTIONS (5)
  - HEADACHE [None]
  - INTESTINAL FUNCTIONAL DISORDER [None]
  - MOOD SWINGS [None]
  - VOMITING [None]
  - WEIGHT DECREASED [None]
